FAERS Safety Report 6376206-1 (Version None)
Quarter: 2009Q3

REPORT INFORMATION
  Report Type: 
  Country: None (occurrence: None)
  Receive Date: 20090924
  Receipt Date: 20090918
  Transmission Date: 20100115
  Serious: Yes (Other)
  Sender: FDA-Public Use
  Company Number: JP-TYCO HEALTHCARE/MALLINCKRODT-T200901676

PATIENT

DRUGS (1)
  1. OPTIRAY 350 [Suspect]
     Indication: PERCUTANEOUS CORONARY INTERVENTION
     Dosage: UNK
     Dates: start: 20070101, end: 20070101

REACTIONS (1)
  - NEPHROPATHY TOXIC [None]
